FAERS Safety Report 8781073 (Version 1)
Quarter: 2012Q4

REPORT INFORMATION
  Report Type: 
  Country: US (occurrence: US)
  Receive Date: 20120913
  Receipt Date: 20120913
  Transmission Date: 20130627
  Serious: Yes (Other)
  Sender: FDA-Public Use
  Company Number: US-MERCK-1209USA005142

PATIENT

DRUGS (2)
  1. REBETOL [Suspect]
     Indication: HEPATITIS C
     Dosage: UNK
  2. PEG-INTRON [Suspect]
     Indication: HEPATITIS C
     Dosage: UNK

REACTIONS (3)
  - Loss of consciousness [Unknown]
  - Convulsion [Unknown]
  - Injury [Unknown]
